FAERS Safety Report 6818258-8 (Version None)
Quarter: 2010Q3

REPORT INFORMATION
  Report Type: 
  Country: None (occurrence: None)
  Receive Date: 20100706
  Receipt Date: 20070918
  Transmission Date: 20110219
  Serious: No
  Sender: FDA-Public Use
  Company Number: US-PFIZER INC-2007033522

PATIENT
  Sex: Female
  Weight: 48.99 kg

DRUGS (3)
  1. ZITHROMAX [Suspect]
     Dates: start: 20070423
  2. HYDROCHLOROTHIAZIDE [Concomitant]
  3. SYNTHROID [Concomitant]

REACTIONS (3)
  - ABDOMINAL DISTENSION [None]
  - MALAISE [None]
  - NAUSEA [None]
